FAERS Safety Report 14198970 (Version 2)
Quarter: 2017Q4

REPORT INFORMATION
  Report Type: Spontaneous
  Country: US (occurrence: US)
  Receive Date: 20171117
  Receipt Date: 20171127
  Transmission Date: 20180321
  Serious: Yes (Hospitalization, Other)
  Sender: FDA-Public Use
  Company Number: US-ASTELLAS-2017US045677

PATIENT
  Age: 84 Year
  Sex: Male

DRUGS (1)
  1. XTANDI [Suspect]
     Active Substance: ENZALUTAMIDE
     Indication: PROSTATE CANCER
     Route: 048
     Dates: start: 20171012, end: 201711

REACTIONS (18)
  - Balance disorder [Unknown]
  - Abnormal behaviour [Unknown]
  - Erythema [Unknown]
  - Weight decreased [Unknown]
  - Somnolence [Unknown]
  - Pollakiuria [Unknown]
  - Asthenia [Unknown]
  - Glaucoma [Not Recovered/Not Resolved]
  - Vitamin B12 decreased [Unknown]
  - Muscle tightness [Not Recovered/Not Resolved]
  - Fatigue [Not Recovered/Not Resolved]
  - Flushing [Unknown]
  - Vomiting [Unknown]
  - Gait disturbance [Unknown]
  - Muscular weakness [Unknown]
  - Feeling cold [Unknown]
  - Dehydration [Unknown]
  - Hypersomnia [Not Recovered/Not Resolved]

NARRATIVE: CASE EVENT DATE: 20171113
